FAERS Safety Report 7065072-7 (Version None)
Quarter: 2010Q4

REPORT INFORMATION
  Report Type: 
  Country: None (occurrence: None)
  Receive Date: 20101027
  Receipt Date: 19900301
  Transmission Date: 20110411
  Serious: Yes (Death, Disabling)
  Sender: FDA-Public Use
  Company Number: US-ROCHE-900200251001

PATIENT
  Age: 83 Year
  Sex: Male

DRUGS (4)
  1. ROCEPHIN [Suspect]
     Indication: SEPSIS
     Route: 065
  2. LIBRIUM CAPSULES [Suspect]
     Indication: DRUG WITHDRAWAL SYNDROME
     Route: 048
  3. DARVON [Concomitant]
     Route: 065
  4. VITAMINS [Concomitant]
     Route: 065

REACTIONS (2)
  - HYPOVENTILATION [None]
  - SEPSIS [None]
